FAERS Safety Report 9095298 (Version 1)
Quarter: 2013Q1

REPORT INFORMATION
  Report Type: Spontaneous
  Country: US (occurrence: None)
  Receive Date: 20130123
  Receipt Date: 20130123
  Transmission Date: 20140127
  Serious: Yes (Death)
  Sender: FDA-Public Use
  Company Number: 2013-00474

PATIENT
  Age: 53 Year
  Sex: Female

DRUGS (2)
  1. CLONAZEPAM [Suspect]
     Indication: PRODUCT USED FOR UNKNOWN INDICATION
     Route: 048
     Dates: end: 2011
  2. MORPHINE SULFATE [Suspect]
     Indication: PRODUCT USED FOR UNKNOWN INDICATION
     Route: 048
     Dates: end: 2011

REACTIONS (8)
  - Cardiac arrest [None]
  - Chemical burn of gastrointestinal tract [None]
  - Chemical burn of respiratory tract [None]
  - Completed suicide [None]
  - Abdominal pain [None]
  - Throat irritation [None]
  - Haematemesis [None]
  - Drug abuse [None]
